FAERS Safety Report 21055247 (Version 2)
Quarter: 2022Q3

REPORT INFORMATION
  Report Type: Report from Study
  Country: US (occurrence: US)
  Receive Date: 20220708
  Receipt Date: 20220803
  Transmission Date: 20221027
  Serious: No
  Sender: FDA-Public Use
  Company Number: US-BIOVITRUM-2022US06996

PATIENT
  Sex: Female

DRUGS (5)
  1. KINERET [Suspect]
     Active Substance: ANAKINRA
     Indication: Product used for unknown indication
     Dates: start: 20220519
  2. KINERET [Suspect]
     Active Substance: ANAKINRA
     Dates: start: 20220519
  3. KINERET [Suspect]
     Active Substance: ANAKINRA
     Dates: start: 20220519
  4. PREDNISOLONE [Concomitant]
     Active Substance: PREDNISOLONE
  5. FAMOTIDINE [Concomitant]
     Active Substance: FAMOTIDINE

REACTIONS (5)
  - Injection site pain [Unknown]
  - Injection site reaction [Unknown]
  - Drug ineffective [Unknown]
  - Product dose omission issue [Unknown]
  - Product physical issue [Unknown]
